FAERS Safety Report 16474642 (Version 1)
Quarter: 2019Q2

REPORT INFORMATION
  Report Type: Spontaneous
  Country: US (occurrence: US)
  Receive Date: 20190516
  Receipt Date: 20190516
  Transmission Date: 20190711
  Serious: Yes (Other)
  Sender: FDA-Public Use
  Company Number: None

PATIENT
  Age: 35 Year
  Sex: Male

DRUGS (1)
  1. OLD SPICE HIGH ENDURANCE PURE SPORT (ALUMINUM ZIRCONIUM TRICHLOROHYDREX GLY) [Suspect]
     Active Substance: ALUMINUM ZIRCONIUM TRICHLOROHYDREX GLY
     Route: 061
     Dates: start: 20180904, end: 20180904

REACTIONS (9)
  - Pharyngeal swelling [None]
  - Pruritus [None]
  - Malaise [None]
  - Dyspnoea [None]
  - Depressed level of consciousness [None]
  - Lip swelling [None]
  - Fall [None]
  - Swollen tongue [None]
  - Blood glucose increased [None]

NARRATIVE: CASE EVENT DATE: 20180904
